FAERS Safety Report 18288529 (Version 1)
Quarter: 2020Q3

REPORT INFORMATION
  Report Type: Spontaneous
  Country: US (occurrence: US)
  Receive Date: 20200919
  Receipt Date: 20200919
  Transmission Date: 20201103
  Serious: Yes (Other)
  Sender: FDA-Public Use
  Company Number: None

PATIENT
  Age: 28 Year
  Sex: Female
  Weight: 57.6 kg

DRUGS (5)
  1. MULTIVITAMIN [Concomitant]
     Active Substance: VITAMINS
  2. PROBIOTIC [Concomitant]
     Active Substance: PROBIOTICS NOS
  3. MAX BIOTIN [Concomitant]
  4. BLUMEN ADVANCED HAND SANITIZER CLEAR [Suspect]
     Active Substance: ALCOHOL
     Indication: COVID-19 PROPHYLAXIS
     Dosage: ?          OTHER STRENGTH:PUMP;QUANTITY:1 PUMP;OTHER ROUTE:SKIN?
     Route: 061
     Dates: start: 20200606, end: 20200717
  5. ZYRTEC [Concomitant]
     Active Substance: CETIRIZINE HYDROCHLORIDE

REACTIONS (7)
  - Fatigue [None]
  - Vision blurred [None]
  - Vitreous floaters [None]
  - Recalled product administered [None]
  - Abdominal pain [None]
  - Nausea [None]
  - Headache [None]

NARRATIVE: CASE EVENT DATE: 20200709
